FAERS Safety Report 5943052-X (Version None)
Quarter: 2008Q4

REPORT INFORMATION
  Report Type: 
  Country: None (occurrence: None)
  Receive Date: 20081103
  Receipt Date: 20081022
  Transmission Date: 20090506
  Serious: Yes (Hospitalization, Other)
  Sender: FDA-Public Use
  Company Number: 2008BI024795

PATIENT
  Age: 60 Year
  Sex: Male

DRUGS (1)
  1. AVONEX [Suspect]
     Indication: MULTIPLE SCLEROSIS
     Dosage: 30 UG; QW; IM
     Route: 030
     Dates: start: 20021121

REACTIONS (6)
  - BRAIN OEDEMA [None]
  - CEREBRAL HAEMORRHAGE [None]
  - FALL [None]
  - HYPOPHAGIA [None]
  - RENAL FAILURE [None]
  - VASCULAR RUPTURE [None]
